FAERS Safety Report 8800215 (Version 2)
Quarter: 2012Q4

REPORT INFORMATION
  Report Type: 
  Country: US (occurrence: US)
  Receive Date: 20120921
  Receipt Date: 20121214
  Transmission Date: 20130627
  Serious: Yes (Other)
  Sender: FDA-Public Use
  Company Number: US-BIOGENIDEC-2012BI038137

PATIENT
  Age: 51 Year
  Sex: Female

DRUGS (3)
  1. TYSABRI [Suspect]
     Indication: MULTIPLE SCLEROSIS
     Route: 042
     Dates: start: 20120507
  2. KEPPRA [Concomitant]
     Indication: CONVULSION
  3. DILANTIN [Concomitant]
     Indication: CONVULSION

REACTIONS (6)
  - Convulsion [Recovered/Resolved]
  - Fall [Recovered/Resolved]
  - Foot fracture [Recovered/Resolved]
  - Ankle fracture [Recovered/Resolved]
  - Ligament injury [Recovered/Resolved]
  - Joint injury [Recovered/Resolved]
